FAERS Safety Report 8560389-9 (Version None)
Quarter: 2012Q3

REPORT INFORMATION
  Report Type: 
  Country: None (occurrence: None)
  Receive Date: 20120802
  Receipt Date: 20120731
  Transmission Date: 20120928
  Serious: Yes (Hospitalization)
  Sender: FDA-Public Use
  Company Number: FR-ROCHE-1095537

PATIENT
  Age: 89 Year
  Sex: Female

DRUGS (5)
  1. BISOPROLOL FUMARATE [Concomitant]
  2. LORAZEPAM [Concomitant]
  3. ACETAMINOPHEN [Concomitant]
  4. MABTHERA [Suspect]
     Indication: PEMPHIGOID
     Dates: start: 20100601
  5. SINTROM [Concomitant]

REACTIONS (1)
  - ACUTE PULMONARY OEDEMA [None]
